FAERS Safety Report 5339227-3 (Version None)
Quarter: 2007Q2

REPORT INFORMATION
  Report Type: 
  Country: None (occurrence: None)
  Receive Date: 20070329
  Receipt Date: 20061213
  Transmission Date: 20071010
  Serious: Yes (Other)
  Sender: FDA-Public Use
  Company Number: A03200607439

PATIENT
  Sex: Male

DRUGS (6)
  1. AMBIEN [Suspect]
     Dosage: ORAL
     Route: 048
  2. OXYMORPHONE - TABLET - 5 MG [Suspect]
     Dosage: ORAL
     Route: 048
  3. OXYMORPHONE - TABLET - 10 MG [Suspect]
     Dosage: ORAL
     Route: 048
  4. OXYMORPHONE - TABLET - 15 MG [Suspect]
     Dosage: ORAL
     Route: 048
  5. OXYMORPHONE - TABLET - 20 MG [Suspect]
     Dosage: ORAL
     Route: 048
  6. LORTAB [Suspect]
     Dosage: ORAL
     Route: 048

REACTIONS (1)
  - HALLUCINATION [None]
